FAERS Safety Report 17559685 (Version 1)
Quarter: 2020Q1

REPORT INFORMATION
  Report Type: Spontaneous
  Country: US (occurrence: US)
  Receive Date: 20200311
  Receipt Date: 20200311
  Transmission Date: 20200409
  Serious: Yes (Hospitalization)
  Sender: FDA-Public Use
  Company Number: None

PATIENT
  Sex: Male
  Weight: 95 kg

DRUGS (2)
  1. GEMCITABINE HYDROCHLORIDE. [Suspect]
     Active Substance: GEMCITABINE HYDROCHLORIDE
     Dates: end: 20200210
  2. CISPLATIN. [Suspect]
     Active Substance: CISPLATIN
     Dates: end: 20200211

REACTIONS (4)
  - Urinary tract infection [None]
  - Bladder spasm [None]
  - Creatinine renal clearance abnormal [None]
  - Post procedural urine leak [None]

NARRATIVE: CASE EVENT DATE: 20200229
